FAERS Safety Report 10056813 (Version 1)
Quarter: 2014Q2

REPORT INFORMATION
  Report Type: Spontaneous
  Country: US (occurrence: US)
  Receive Date: 20140403
  Receipt Date: 20140403
  Transmission Date: 20141212
  Serious: Yes (Other)
  Sender: FDA-Public Use
  Company Number: US-ACTAVIS-2014-06105

PATIENT
  Age: 46 Year
  Sex: Male

DRUGS (4)
  1. HYDROCODONE BITARTRATE/ACETAMINOPHEN 5/500 (WATSON LABORATORIES) [Suspect]
     Indication: PAIN IN JAW
     Dosage: 1 DF, TID
     Route: 048
     Dates: start: 201312, end: 20140315
  2. HYDROCODONE BITARTRATE/ACETAMINOPHEN 5/500 (WATSON LABORATORIES) [Suspect]
     Indication: POST-TRAUMATIC STRESS DISORDER
  3. ALPRAZOLAM [Concomitant]
     Indication: PANIC ATTACK
     Dosage: 1 MG, TID
     Route: 048
     Dates: start: 2011
  4. DIAZEPAM [Concomitant]
     Indication: PANIC ATTACK
     Dosage: 10 MG, TWO TABLETS AT NIGHT
     Route: 065

REACTIONS (7)
  - Suicide attempt [Recovering/Resolving]
  - Blood urine present [Recovering/Resolving]
  - Haematochezia [Not Recovered/Not Resolved]
  - Dyspnoea [Not Recovered/Not Resolved]
  - Drug withdrawal syndrome [Recovered/Resolved]
  - Weight increased [Not Recovered/Not Resolved]
  - Onychomadesis [Unknown]
